FAERS Safety Report 4820680-6 (Version None)
Quarter: 2005Q4

REPORT INFORMATION
  Report Type: 
  Country: None (occurrence: None)
  Receive Date: 20051104
  Receipt Date: 20051024
  Transmission Date: 20060501
  Serious: No
  Sender: FDA-Public Use
  Company Number: GB-JNJFOC-20050904633

PATIENT
  Sex: Male
  Weight: 43.5 kg

DRUGS (1)
  1. CONCERTA [Suspect]
     Dosage: 54 MG AM  18 MG AT 3:30 PM
     Route: 048

REACTIONS (5)
  - DEPRESSED MOOD [None]
  - DIZZINESS POSTURAL [None]
  - DRY MOUTH [None]
  - FATIGUE [None]
  - THIRST [None]
